FAERS Safety Report 13291816 (Version 1)
Quarter: 2017Q1

REPORT INFORMATION
  Report Type: Spontaneous
  Country: US (occurrence: US)
  Receive Date: 20170303
  Receipt Date: 20170303
  Transmission Date: 20170428
  Serious: No
  Sender: FDA-Public Use
  Company Number: US-DEPOMED, INC.-US-2016DEP008251

PATIENT

DRUGS (5)
  1. URIBEL [Concomitant]
     Active Substance: HYOSCYAMINE SULFATE\METHENAMINE\METHYLENE BLUE\PHENYL SALICYLATE\SODIUM PHOSPHATE, MONOBASIC, MONOHYDRATE
     Indication: URINARY TRACT INFECTION
     Dosage: UNK, QID, BEEN ON FOR AT LEAST 5 YEARS
  2. GRALISE [Suspect]
     Active Substance: GABAPENTIN
     Indication: HERPES ZOSTER
     Dosage: 600 MG, BID (BEGAN WITH DAY 7 THROUGH 10)
     Route: 048
     Dates: start: 20160210, end: 20160213
  3. MELATONIN [Concomitant]
     Active Substance: MELATONIN
     Indication: SLEEP DISORDER
     Dosage: STRENGTH AND DOSING REGIMEN NOT OBTAINED (BEGAN YEARS AGO)
  4. GRALISE [Suspect]
     Active Substance: GABAPENTIN
     Dosage: 300,600 MG (1-2 TIMES A DAY) TITRATION DAYS 11-14
     Route: 048
     Dates: start: 20160214, end: 20160217
  5. GRALISE [Suspect]
     Active Substance: GABAPENTIN
     Dosage: 600 MG, TID TITRATION DAY 15
     Route: 048
     Dates: start: 20160218

REACTIONS (5)
  - Drug administration error [Unknown]
  - Drug titration error [Unknown]
  - Inappropriate schedule of drug administration [Unknown]
  - Malaise [Unknown]
  - Off label use [Unknown]

NARRATIVE: CASE EVENT DATE: 20160210
